FAERS Safety Report 9973424 (Version 1)
Quarter: 2014Q1

REPORT INFORMATION
  Report Type: Spontaneous
  Country: BR (occurrence: BR)
  Receive Date: 20140306
  Receipt Date: 20140306
  Transmission Date: 20141002
  Serious: Yes (Hospitalization)
  Sender: FDA-Public Use
  Company Number: BR-PFIZER INC-2014060101

PATIENT
  Sex: Female

DRUGS (1)
  1. LYRICA [Suspect]
     Indication: PAIN
     Dosage: 75 MG, UNK
     Dates: start: 2013

REACTIONS (8)
  - Road traffic accident [Unknown]
  - Osteoporosis [Unknown]
  - Exostosis [Unknown]
  - Feeling abnormal [Unknown]
  - Dizziness [Unknown]
  - Tremor [Unknown]
  - Hyperhidrosis [Unknown]
  - Dyspnoea [Unknown]
